FAERS Safety Report 14213988 (Version 2)
Quarter: 2017Q4

REPORT INFORMATION
  Report Type: Report from Study
  Country: None (occurrence: BR)
  Receive Date: 20171122
  Receipt Date: 20171220
  Transmission Date: 20180321
  Serious: Yes (Other)
  Sender: FDA-Public Use
  Company Number: BR-ABBVIE-17K-020-2168392-00

PATIENT
  Age: 51 Year
  Sex: Female
  Weight: 69 kg

DRUGS (1)
  1. HUMIRA [Suspect]
     Active Substance: ADALIMUMAB
     Indication: CROHN^S DISEASE
     Route: 058
     Dates: start: 20141201

REACTIONS (8)
  - Headache [Not Recovered/Not Resolved]
  - Menopausal symptoms [Unknown]
  - Uterine haemorrhage [Not Recovered/Not Resolved]
  - Adverse event [Unknown]
  - Uterine cyst [Unknown]
  - Hormone level abnormal [Recovered/Resolved]
  - Weight increased [Recovered/Resolved]
  - Pain [Unknown]

NARRATIVE: CASE EVENT DATE: 2015
